FAERS Safety Report 7515794-6 (Version None)
Quarter: 2011Q2

REPORT INFORMATION
  Report Type: 
  Country: None (occurrence: None)
  Receive Date: 20110601
  Receipt Date: 20110518
  Transmission Date: 20111010
  Serious: Yes (Hospitalization)
  Sender: FDA-Public Use
  Company Number: FR-PFIZER INC-2011117443

PATIENT
  Age: 47 Year
  Sex: Male

DRUGS (7)
  1. TRIMEPRAZINE TARTRATE [Suspect]
     Dosage: 50 MG, UNK
     Route: 048
  2. CRESTOR [Concomitant]
     Indication: HYPERCHOLESTEROLAEMIA
     Dosage: 5 MG, UNK
     Route: 048
  3. ATARAX [Suspect]
     Dosage: 100 MG, UNK
     Route: 048
  4. OXAZEPAM [Suspect]
     Dosage: 50 MG, UNK
     Route: 048
  5. AMLODIPINE BESYLATE [Concomitant]
     Indication: HYPERTENSION
     Dosage: 10 MG, UNK
     Route: 048
  6. ASPIRIN [Concomitant]
     Indication: ARTERITIS OBLITERANS
     Dosage: 160 MG, UNK
     Route: 048
  7. IRBESARTAN [Concomitant]
     Indication: HYPERTENSION
     Dosage: 300 MG, DAILY
     Route: 048

REACTIONS (1)
  - SUICIDE ATTEMPT [None]
